FAERS Safety Report 21918837 (Version 3)
Quarter: 2023Q1

REPORT INFORMATION
  Report Type: Report from Study
  Country: US (occurrence: US)
  Receive Date: 20230127
  Receipt Date: 20230320
  Transmission Date: 20230418
  Serious: No
  Sender: FDA-Public Use
  Company Number: US-SA-SAC20230125001820

PATIENT
  Sex: Female
  Weight: 47 kg

DRUGS (1)
  1. AUBAGIO [Suspect]
     Active Substance: TERIFLUNOMIDE
     Indication: Multiple sclerosis
     Dosage: 14 MG, QD
     Route: 048
     Dates: start: 20200530

REACTIONS (10)
  - COVID-19 [Unknown]
  - Malaise [Unknown]
  - Asthenia [Unknown]
  - Illness [Unknown]
  - Dehydration [Unknown]
  - Visual impairment [Unknown]
  - Thinking abnormal [Unknown]
  - Colonoscopy [Unknown]
  - Pain in extremity [Unknown]
  - Product dose omission issue [Unknown]
